FAERS Safety Report 24984022 (Version 1)
Quarter: 2025Q1

REPORT INFORMATION
  Report Type: Spontaneous
  Country: US (occurrence: US)
  Receive Date: 20250219
  Receipt Date: 20250219
  Transmission Date: 20250408
  Serious: Yes (Other)
  Sender: BIOCODEX
  Company Number: US-BIOCODEX2-2025000160

PATIENT
  Age: 11 Year
  Sex: Male

DRUGS (1)
  1. DIACOMIT [Suspect]
     Active Substance: STIRIPENTOL
     Indication: Product used for unknown indication
     Route: 065

REACTIONS (4)
  - Sleep disorder [Unknown]
  - Aggression [Unknown]
  - Behaviour disorder [Unknown]
  - Seizure [Recovering/Resolving]
